FAERS Safety Report 15593102 (Version 6)
Quarter: 2019Q1

REPORT INFORMATION
  Report Type: Spontaneous
  Country: US (occurrence: US)
  Receive Date: 20181107
  Receipt Date: 20190211
  Transmission Date: 20190417
  Serious: Yes (Death, Other)
  Sender: FDA-Public Use
  Company Number: US-GILEAD-2018-0371872

PATIENT
  Age: 55 Year
  Sex: Male
  Weight: 84 kg

DRUGS (14)
  1. OCEAN NASAL [Concomitant]
  2. MIRALAX [Concomitant]
     Active Substance: POLYETHYLENE GLYCOL 3350
  3. YESCARTA [Suspect]
     Active Substance: AXICABTAGENE CILOLEUCEL
     Indication: DIFFUSE LARGE B-CELL LYMPHOMA
     Dosage: 68 ML, SINGLE
     Route: 042
     Dates: start: 20181022, end: 20181022
  4. ALBUMIN [Concomitant]
     Active Substance: ALBUMIN HUMAN
  5. PROTONIX [OMEPRAZOLE] [Concomitant]
     Active Substance: OMEPRAZOLE
  6. CYCLOBENZAPRINE. [Concomitant]
     Active Substance: CYCLOBENZAPRINE
  7. FLUCONAZOLE. [Concomitant]
     Active Substance: FLUCONAZOLE
  8. ZOFRAN [Concomitant]
     Active Substance: ONDANSETRON HYDROCHLORIDE
  9. SODIUM CHLORIDE. [Concomitant]
     Active Substance: SODIUM CHLORIDE
  10. KLONOPIN [Concomitant]
     Active Substance: CLONAZEPAM
  11. KEPPRA [Concomitant]
     Active Substance: LEVETIRACETAM
  12. METOPROLOL. [Concomitant]
     Active Substance: METOPROLOL
  13. ZOLOFT [Concomitant]
     Active Substance: SERTRALINE HYDROCHLORIDE
  14. CEFEPIME [Concomitant]
     Active Substance: CEFEPIME HYDROCHLORIDE

REACTIONS (12)
  - Cytokine release syndrome [Recovered/Resolved]
  - Tachycardia [Not Recovered/Not Resolved]
  - Platelet count decreased [Not Recovered/Not Resolved]
  - Serum ferritin increased [Not Recovered/Not Resolved]
  - White blood cell count decreased [Recovered/Resolved]
  - Neurotoxicity [Recovered/Resolved]
  - Acute kidney injury [Not Recovered/Not Resolved]
  - Hypotension [Not Recovered/Not Resolved]
  - Neutrophil count decreased [Recovered/Resolved]
  - Death [Fatal]
  - Pyrexia [Not Recovered/Not Resolved]
  - C-reactive protein increased [Not Recovered/Not Resolved]

NARRATIVE: CASE EVENT DATE: 20181023
